FAERS Safety Report 12707333 (Version 2)
Quarter: 2016Q4

REPORT INFORMATION
  Report Type: Spontaneous
  Country: US (occurrence: US)
  Receive Date: 20160901
  Receipt Date: 20161205
  Transmission Date: 20170207
  Serious: No
  Sender: FDA-Public Use
  Company Number: US-THE MEDICINES COMPANY-US-MDCO-16-00318

PATIENT
  Sex: Male
  Weight: 102.42 kg

DRUGS (1)
  1. ORBACTIV [Suspect]
     Active Substance: ORITAVANCIN
     Indication: CELLULITIS
     Route: 041
     Dates: start: 20160726, end: 20160726

REACTIONS (3)
  - Pain [Recovering/Resolving]
  - Condition aggravated [Unknown]
  - Muscle spasms [Unknown]
